FAERS Safety Report 13922588 (Version 2)
Quarter: 2017Q4

REPORT INFORMATION
  Report Type: Spontaneous
  Country: US (occurrence: US)
  Receive Date: 20170830
  Receipt Date: 20171101
  Transmission Date: 20180320
  Serious: Yes (Life-Threatening)
  Sender: FDA-Public Use
  Company Number: US-ELI_LILLY_AND_COMPANY-US201708011495

PATIENT
  Age: 60 Year
  Sex: Male

DRUGS (7)
  1. DEXAMETHASONE                      /00016011/ [Concomitant]
     Indication: PREMEDICATION
     Dosage: UNK
     Dates: start: 20170822
  2. CYRAMZA [Suspect]
     Active Substance: RAMUCIRUMAB
     Indication: COLON CANCER
     Dosage: 8 MG, SINGLE
     Route: 042
     Dates: start: 20170823, end: 20170823
  3. LISINOPRIL. [Concomitant]
     Active Substance: LISINOPRIL
     Indication: PRODUCT USED FOR UNKNOWN INDICATION
  4. CYRAMZA [Suspect]
     Active Substance: RAMUCIRUMAB
     Dosage: 8 MG, SINGLE
     Route: 042
     Dates: start: 20170823, end: 20170823
  5. TOPROL XL [Concomitant]
     Active Substance: METOPROLOL SUCCINATE
     Indication: PRODUCT USED FOR UNKNOWN INDICATION
  6. BENADRYL [Concomitant]
     Active Substance: DIPHENHYDRAMINE HYDROCHLORIDE
     Indication: PREMEDICATION
     Dosage: UNK
     Route: 048
     Dates: start: 20170823, end: 20170823
  7. BENADRYL [Concomitant]
     Active Substance: DIPHENHYDRAMINE HYDROCHLORIDE
     Indication: HYPERSENSITIVITY

REACTIONS (1)
  - Hypersensitivity [Recovered/Resolved]

NARRATIVE: CASE EVENT DATE: 20170823
